FAERS Safety Report 23274534 (Version 1)
Quarter: 2023Q4

REPORT INFORMATION
  Report Type: Spontaneous
  Country: US (occurrence: US)
  Receive Date: 20231208
  Receipt Date: 20231208
  Transmission Date: 20240110
  Serious: Yes (Other)
  Sender: FDA-Public Use
  Company Number: US-009507513-2312USA001378

PATIENT
  Sex: Male
  Weight: 71.655 kg

DRUGS (9)
  1. KEYTRUDA [Suspect]
     Active Substance: PEMBROLIZUMAB
     Dosage: UNK
  2. LENVATINIB MESYLATE [Suspect]
     Active Substance: LENVATINIB MESYLATE
     Indication: Metastatic renal cell carcinoma
     Dosage: 20 MILLIGRAM, QD (STRENGTH: 10 MG)
     Route: 048
     Dates: start: 20230516
  3. ELIQUIS [Concomitant]
     Active Substance: APIXABAN
  4. GAS-X [Concomitant]
     Active Substance: DIMETHICONE
  5. LIPITOR [Concomitant]
     Active Substance: ATORVASTATIN CALCIUM
  6. ONDANSETRON [Concomitant]
     Active Substance: ONDANSETRON
  7. PEPCID AC [Concomitant]
     Active Substance: FAMOTIDINE
  8. PROCHLORPERAZINE [Concomitant]
     Active Substance: PROCHLORPERAZINE
  9. TYLENOL [Concomitant]
     Active Substance: ACETAMINOPHEN

REACTIONS (2)
  - Colitis [Not Recovered/Not Resolved]
  - Duodenal ulcer [Not Recovered/Not Resolved]
